FAERS Safety Report 18792398 (Version 1)
Quarter: 2021Q1

REPORT INFORMATION
  Report Type: Spontaneous
  Country: US (occurrence: US)
  Receive Date: 20210127
  Receipt Date: 20210127
  Transmission Date: 20210419
  Serious: No
  Sender: FDA-Public Use
  Company Number: US-ELI_LILLY_AND_COMPANY-US202101002416

PATIENT
  Sex: Male

DRUGS (7)
  1. BASAGLAR [Suspect]
     Active Substance: INSULIN GLARGINE
     Indication: PRODUCT USED FOR UNKNOWN INDICATION
     Dosage: 30?40 U, UNKNOWN
     Route: 065
     Dates: start: 202004
  2. BASAGLAR [Suspect]
     Active Substance: INSULIN GLARGINE
     Dosage: 60 U, UNKNOWN
     Route: 065
     Dates: start: 202004
  3. METFORMIN [Suspect]
     Active Substance: METFORMIN HYDROCHLORIDE
     Indication: PRODUCT USED FOR UNKNOWN INDICATION
     Dosage: UNK, UNKNOWN
     Route: 065
  4. BASAGLAR [Suspect]
     Active Substance: INSULIN GLARGINE
     Dosage: 60 U, UNKNOWN
     Route: 065
     Dates: start: 202004
  5. BASAGLAR [Suspect]
     Active Substance: INSULIN GLARGINE
     Dosage: 80?100 U, UNKNOWN
     Route: 065
     Dates: start: 202004
  6. BASAGLAR [Suspect]
     Active Substance: INSULIN GLARGINE
     Dosage: 80?100 U, UNKNOWN
     Route: 065
     Dates: start: 202004
  7. BASAGLAR [Suspect]
     Active Substance: INSULIN GLARGINE
     Indication: PRODUCT USED FOR UNKNOWN INDICATION
     Dosage: 30?40 U, UNKNOWN
     Route: 065
     Dates: start: 202004

REACTIONS (4)
  - Glycosylated haemoglobin increased [Unknown]
  - Drug ineffective [Unknown]
  - Dyspepsia [Unknown]
  - Blood glucose increased [Unknown]
